FAERS Safety Report 6794057-0 (Version None)
Quarter: 2010Q2

REPORT INFORMATION
  Report Type: 
  Country: None (occurrence: None)
  Receive Date: 20100624
  Receipt Date: 20070403
  Transmission Date: 20101027
  Serious: Yes (Hospitalization)
  Sender: FDA-Public Use
  Company Number: US-PFIZER INC-ENC200700048

PATIENT
  Sex: Female
  Weight: 90.5 kg

DRUGS (20)
  1. ARGATROBAN [Suspect]
     Indication: HEPARIN-INDUCED THROMBOCYTOPENIA
     Dosage: 2 MCG/KG/MIN,FREQUENCY:  UNK
     Route: 042
     Dates: start: 20070321, end: 20070301
  2. ARGATROBAN [Suspect]
     Indication: HEART VALVE OPERATION
     Dosage: 1.5 MG/HR
     Route: 042
     Dates: start: 20070301
  3. WARFARIN SODIUM [Suspect]
     Dosage: FREQUENCY:  QD, 5 DAYS A WEEK
     Route: 048
     Dates: end: 20070320
  4. WARFARIN SODIUM [Suspect]
     Dosage: FREQUENCY:  QD, 2 DAYS A WEEK
     Route: 065
     Dates: end: 20070320
  5. WARFARIN SODIUM [Suspect]
     Dosage: FREQUENCY:  QD
     Route: 048
     Dates: start: 20070325, end: 20070327
  6. WARFARIN SODIUM [Suspect]
     Dosage: FREQUENCY:  QD
     Route: 048
     Dates: start: 20070328, end: 20070330
  7. WARFARIN SODIUM [Suspect]
     Dosage: FREQUENCY:  QD
     Route: 048
     Dates: start: 20070331, end: 20070331
  8. WARFARIN SODIUM [Suspect]
     Dosage: FREQUENCY:  QD
     Route: 048
     Dates: start: 20070301
  9. LISINOPRIL [Concomitant]
  10. POTASSIUM [Concomitant]
  11. GLIBENCLAMIDE [Concomitant]
  12. SERTRALINE HCL [Concomitant]
  13. GABAPENTIN [Concomitant]
  14. FUROSEMIDE [Concomitant]
  15. ATORVASTATIN CALCIUM [Concomitant]
  16. PANTOPRAZOLE [Concomitant]
  17. LEVOTHYROXINE SODIUM [Concomitant]
  18. MORPHINE [Concomitant]
  19. HYDROCODONE BITARTRATE + ACETAMINOPHEN [Concomitant]
  20. ALPRAZOLAM [Concomitant]

REACTIONS (1)
  - INTERNATIONAL NORMALISED RATIO DECREASED [None]
